FAERS Safety Report 8098882-8 (Version None)
Quarter: 2012Q1

REPORT INFORMATION
  Report Type: 
  Country: None (occurrence: None)
  Receive Date: 20120129
  Receipt Date: 20111003
  Transmission Date: 20120608
  Serious: No
  Sender: FDA-Public Use
  Company Number: US-ABBOTT-11P-163-0860382-00

PATIENT
  Age: 25 Year
  Sex: Male

DRUGS (4)
  1. HUMIRA [Suspect]
     Indication: PSORIASIS
     Dosage: LOADING DOSE
     Dates: start: 20110922, end: 20110922
  2. HUMIRA [Suspect]
     Dates: start: 20110929, end: 20110929
  3. TOPICAL CREAMS [Concomitant]
     Indication: PSORIASIS
     Route: 061
  4. DEPAKOTE [Concomitant]
     Indication: CONVULSION

REACTIONS (1)
  - NASAL CONGESTION [None]
